FAERS Safety Report 20925406 (Version 1)
Quarter: 2022Q2

REPORT INFORMATION
  Report Type: Spontaneous
  Country: US (occurrence: US)
  Receive Date: 20220607
  Receipt Date: 20220607
  Transmission Date: 20220720
  Serious: Yes (Other)
  Sender: FDA-Public Use
  Company Number: US-UPSHER-SMITH LABORATORIES, LLC-2021USL00503

PATIENT
  Age: 78 Year
  Sex: Male
  Weight: 77.098 kg

DRUGS (16)
  1. PACERONE [Suspect]
     Active Substance: AMIODARONE HYDROCHLORIDE
     Indication: Ventricular fibrillation
     Dosage: 200 MG, 1X/DAY IN THE MORNING
     Route: 048
     Dates: start: 2021
  2. PACERONE [Suspect]
     Active Substance: AMIODARONE HYDROCHLORIDE
     Dosage: 400 MG, 2X/DAY
     Route: 048
     Dates: start: 20200921, end: 2021
  3. CARVEDILOL [Concomitant]
     Active Substance: CARVEDILOL
     Dosage: 3.125 MG, 2X/DAY
  4. ATORVASTATIN [Concomitant]
     Active Substance: ATORVASTATIN
     Dosage: 80 MG, 1X/DAY
  5. CLOPIDOGREL [Concomitant]
     Active Substance: CLOPIDOGREL BISULFATE
     Dosage: 75 MG, 1X/DAY
  6. ELIQUIS [Concomitant]
     Active Substance: APIXABAN
     Dosage: 10 MG PER DAY
  7. ENTRESTO [Concomitant]
     Active Substance: SACUBITRIL\VALSARTAN
     Dosage: ^4959^ MG, 2X/DAY
  8. FUROSEMIDE [Concomitant]
     Active Substance: FUROSEMIDE
     Dosage: 40 MG, 1X/DAY
  9. METFORMIN [Concomitant]
     Active Substance: METFORMIN HYDROCHLORIDE
     Dosage: 1000 MG PER DAY
  10. POTASSIUM CHLORIDE [Concomitant]
     Active Substance: POTASSIUM CHLORIDE
     Dosage: 10 MEQ, 1X/DAY
  11. TAMSULOSIN [Concomitant]
     Active Substance: TAMSULOSIN
     Dosage: 0.4 MG, 1X/DAY AT BEDTIME
  12. GLIMEPIRIDE [Concomitant]
     Active Substance: GLIMEPIRIDE
  13. TRIAMCINOLONE [Concomitant]
     Active Substance: TRIAMCINOLONE
     Route: 061
  14. TYLENOL [Concomitant]
     Active Substance: ACETAMINOPHEN
  15. VITAMIN C [Concomitant]
     Active Substance: ASCORBIC ACID
  16. VITAMIN D [Concomitant]
     Active Substance: VITAMIN D NOS

REACTIONS (1)
  - Drug ineffective [Recovered/Resolved]

NARRATIVE: CASE EVENT DATE: 20210501
